FAERS Safety Report 22934302 (Version 3)
Quarter: 2023Q4

REPORT INFORMATION
  Report Type: Report from Study
  Country: PE (occurrence: PE)
  Receive Date: 20230912
  Receipt Date: 20231124
  Transmission Date: 20240109
  Serious: Yes (Hospitalization, Other)
  Sender: FDA-Public Use
  Company Number: PE-002147023-NVSC2023PE191631

PATIENT
  Sex: Female

DRUGS (3)
  1. KISQALI [Suspect]
     Active Substance: RIBOCICLIB
     Indication: Breast cancer metastatic
     Dosage: 600 MG, QD (3)
     Route: 048
     Dates: start: 20230725, end: 20230903
  2. KISQALI [Suspect]
     Active Substance: RIBOCICLIB
     Dosage: 400 MG, QD (2)
     Route: 048
     Dates: start: 20230903, end: 20231112
  3. KISQALI [Suspect]
     Active Substance: RIBOCICLIB
     Dosage: 400 MG, QD
     Route: 048
     Dates: start: 20230725, end: 20231112

REACTIONS (10)
  - Breast cancer metastatic [Unknown]
  - Respiratory disorder [Unknown]
  - Drug intolerance [Unknown]
  - Metastasis [Unknown]
  - Malignant neoplasm progression [Unknown]
  - Flatulence [Unknown]
  - Nausea [Unknown]
  - Fatigue [Unknown]
  - Anaemia [Unknown]
  - Asthenia [Unknown]

NARRATIVE: CASE EVENT DATE: 20230101
